FAERS Safety Report 5133234-1 (Version None)
Quarter: 2006Q4

REPORT INFORMATION
  Report Type: 
  Country: None (occurrence: None)
  Receive Date: 20061018
  Receipt Date: 20061005
  Transmission Date: 20070319
  Serious: Yes (Other)
  Sender: FDA-Public Use
  Company Number: 230902

PATIENT
  Age: 65 Year
  Sex: Male

DRUGS (1)
  1. MABTHERA (RITUXIMAB) CONC FOR SOLUTION FOR INFUSION [Suspect]
     Indication: RHEUMATOID ARTHRITIS

REACTIONS (4)
  - CONDITION AGGRAVATED [None]
  - MYCOPLASMA INFECTION [None]
  - PNEUMOCYSTIS JIROVECI INFECTION [None]
  - PSORIASIS [None]
